FAERS Safety Report 6896892-7 (Version None)
Quarter: 2010Q3

REPORT INFORMATION
  Report Type: 
  Country: None (occurrence: None)
  Receive Date: 20100802
  Receipt Date: 20070301
  Transmission Date: 20110219
  Serious: No
  Sender: FDA-Public Use
  Company Number: US-PFIZER INC-2007017399

PATIENT
  Sex: Female
  Weight: 127 kg

DRUGS (15)
  1. LYRICA [Suspect]
     Indication: DIABETIC NEUROPATHY
     Dates: start: 20060101
  2. LASIX [Concomitant]
  3. AVANDIA [Concomitant]
  4. GLUCOPHAGE [Concomitant]
  5. ZESTRIL [Concomitant]
     Indication: BLOOD PRESSURE
  6. CADUET [Concomitant]
  7. TRICOR [Concomitant]
  8. LIPITOR [Concomitant]
  9. REQUIP [Concomitant]
  10. LANTUS [Concomitant]
  11. HUMALOG [Concomitant]
     Indication: BLOOD GLUCOSE
  12. PROTONIX [Concomitant]
  13. DICLOFENAC [Concomitant]
  14. VALIUM [Concomitant]
  15. AMITRIPTYLINE HYDROCHLORIDE [Concomitant]

REACTIONS (3)
  - HUNGER [None]
  - JOINT SWELLING [None]
  - WEIGHT INCREASED [None]
